FAERS Safety Report 17544710 (Version 1)
Quarter: 2020Q1

REPORT INFORMATION
  Report Type: Other
  Country: DE (occurrence: DE)
  Receive Date: 20200316
  Receipt Date: 20200316
  Transmission Date: 20200409
  Serious: Yes (Hospitalization)
  Sender: FDA-Public Use
  Company Number: DE-MACLEODS PHARMACEUTICALS US LTD-MAC2020025567

PATIENT

DRUGS (8)
  1. CLOPIDOGREL [Suspect]
     Active Substance: CLOPIDOGREL BISULFATE
     Indication: PRODUCT USED FOR UNKNOWN INDICATION
     Dosage: 75 MILLIGRAM TABLET  (1-0-0-0),
     Route: 048
  2. SITAGLIPTIN [Concomitant]
     Active Substance: SITAGLIPTIN
     Indication: PRODUCT USED FOR UNKNOWN INDICATION
     Dosage: 50 MILLIGRAM, TABLET BID
     Route: 048
  3. PREDNIFLUID [Concomitant]
     Indication: PRODUCT USED FOR UNKNOWN INDICATION
     Dosage: 10 MILLIGRAM, TABLET TID (1-1-1-0)
     Route: 048
  4. XALACOM [Concomitant]
     Active Substance: LATANOPROST\TIMOLOL MALEATE
     Indication: PRODUCT USED FOR UNKNOWN INDICATION
     Dosage: (1-0-1-0), TABLET
     Route: 048
  5. RAMIPRIL TABLET [Suspect]
     Active Substance: RAMIPRIL
     Indication: PRODUCT USED FOR UNKNOWN INDICATION
     Dosage: 10 MILLIGRAM, TABLET QD (1-0-0-0)
     Route: 048
  6. BRIMONIDINE [Concomitant]
     Active Substance: BRIMONIDINE TARTRATE
     Indication: PRODUCT USED FOR UNKNOWN INDICATION
     Dosage: 2 MILLIGRAM, (1-0-1-0) TABLET
     Route: 048
  7. ASPIRIN. [Concomitant]
     Active Substance: ASPIRIN
     Indication: PRODUCT USED FOR UNKNOWN INDICATION
     Dosage: 100 MILLIGRAM (0-1-0-0), QD TABLET
     Route: 065
  8. METFORMIN [Concomitant]
     Active Substance: METFORMIN HYDROCHLORIDE
     Indication: PRODUCT USED FOR UNKNOWN INDICATION
     Dosage: 1000 MILLIGRAM, BID TABLET (1-0-1-0),
     Route: 065

REACTIONS (6)
  - Gait disturbance [Unknown]
  - Vomiting [Unknown]
  - Nausea [Unknown]
  - Dizziness [Unknown]
  - Dizziness postural [Unknown]
  - Weight decreased [Unknown]
